FAERS Safety Report 9225342 (Version 1)
Quarter: 2013Q1

REPORT INFORMATION
  Report Type: Spontaneous
  Country: US (occurrence: None)
  Receive Date: 20120912
  Receipt Date: 20120912
  Transmission Date: 20140127
  Serious: No
  Sender: FDA-Public Use
  Company Number: 2012SP023072

PATIENT
  Sex: Female

DRUGS (1)
  1. SAPHRIS [Suspect]
     Indication: DEPRESSION
     Route: 048
     Dates: start: 20120201, end: 20120501

REACTIONS (4)
  - Blood glucose increased [None]
  - Glycosylated haemoglobin increased [None]
  - Incorrect route of drug administration [None]
  - Off label use [None]
